FAERS Safety Report 6015070-7 (Version None)
Quarter: 2008Q4

REPORT INFORMATION
  Report Type: 
  Country: None (occurrence: None)
  Receive Date: 20081218
  Receipt Date: 20081202
  Transmission Date: 20090506
  Serious: Yes (Hospitalization, Other)
  Sender: FDA-Public Use
  Company Number: KV200800771

PATIENT
  Age: 66 Year
  Sex: Female
  Weight: 83 kg

DRUGS (1)
  1. MORPHINE SULFATE [Suspect]
     Indication: BACK PAIN
     Dosage: 30 MG, Q4H, ORAL
     Route: 048
     Dates: start: 20000101

REACTIONS (4)
  - LOSS OF CONSCIOUSNESS [None]
  - OVERDOSE [None]
  - PRODUCT QUALITY ISSUE [None]
  - RENAL FAILURE [None]
